FAERS Safety Report 5910493-6 (Version None)
Quarter: 2008Q4

REPORT INFORMATION
  Report Type: 
  Country: None (occurrence: None)
  Receive Date: 20081007
  Receipt Date: 20080130
  Transmission Date: 20090506
  Serious: No
  Sender: FDA-Public Use
  Company Number: US-ASTRAZENECA-2008UW02167

PATIENT
  Age: 74 Year
  Sex: Female
  Weight: 97.5 kg

DRUGS (4)
  1. ARIMIDEX [Suspect]
     Indication: BREAST CANCER
     Route: 048
  2. LEVOTHYROXINE SODIUM [Concomitant]
  3. ALTACE [Concomitant]
  4. HYDROCHLOROTHIAZIDE [Concomitant]

REACTIONS (5)
  - CHEST PAIN [None]
  - DYSPNOEA [None]
  - HOT FLUSH [None]
  - NAUSEA [None]
  - TREMOR [None]
